FAERS Safety Report 9339836 (Version 1)
Quarter: 2013Q2

REPORT INFORMATION
  Report Type: Spontaneous
  Country: DE (occurrence: None)
  Receive Date: 20130605
  Receipt Date: 20130605
  Transmission Date: 20140414
  Serious: Yes (Hospitalization)
  Sender: FDA-Public Use
  Company Number: GER/GER/13/0029809

PATIENT
  Age: 76 Year
  Sex: Female

DRUGS (5)
  1. RAMIPRIL [Suspect]
     Indication: CARDIOMYOPATHY
     Route: 048
  2. SPIRONOLACTONE (SPIRONOLACTONE) [Suspect]
     Indication: CARDIOMYOPATHY
     Route: 048
     Dates: start: 201210
  3. PRADAXA (DABIGATRAN ETEXILATE MESILATE) [Concomitant]
     Indication: ATRIAL FIBRILLATION
     Route: 048
     Dates: start: 201301, end: 20130219
  4. TORASEMIDE (TORASEMIDE) [Concomitant]
  5. ACETYLSALICYCLIC ACID (ACETYLSALICYLIC ACID) [Concomitant]

REACTIONS (3)
  - Blood creatinine increased [None]
  - Haemoglobin decreased [None]
  - International normalised ratio increased [None]
